FAERS Safety Report 9153944 (Version 3)
Quarter: 2013Q1

REPORT INFORMATION
  Report Type: Spontaneous
  Country: JP (occurrence: JP)
  Receive Date: 20130311
  Receipt Date: 20130327
  Transmission Date: 20140127
  Serious: Yes (Hospitalization)
  Sender: FDA-Public Use
  Company Number: JP-BRISTOL-MYERS SQUIBB COMPANY-17459223

PATIENT
  Age: 18 Year
  Sex: Male

DRUGS (2)
  1. ABILIFY TABS [Suspect]
     Indication: SCHIZOPHRENIA
     Dosage: 15-21DEC12:3MG?22DEC-04JAN13:6MG?05JAN13-07FEB13:12MG?09FEB13-ONG:12MG
     Route: 048
     Dates: start: 20121215
  2. LONASEN [Concomitant]
     Dosage: TABS
     Dates: start: 2012, end: 20130118

REACTIONS (2)
  - Pneumothorax [Recovering/Resolving]
  - Pulmonary bulla [Unknown]
